FAERS Safety Report 9760330 (Version 2)
Quarter: 2015Q3

REPORT INFORMATION
  Report Type: Spontaneous
  Country: US (occurrence: US)
  Receive Date: 20131216
  Receipt Date: 20150806
  Transmission Date: 20151125
  Serious: No
  Sender: FDA-Public Use
  Company Number: US-GILEAD-2010-0029296

PATIENT
  Age: 71 Year
  Sex: Female
  Weight: 114 kg

DRUGS (15)
  1. CATAPRES-TTS [Concomitant]
     Active Substance: CLONIDINE
  2. NORVASC [Concomitant]
     Active Substance: AMLODIPINE BESYLATE
  3. KLOR-CON [Concomitant]
     Active Substance: POTASSIUM CHLORIDE
  4. VITAMIN B12 [Concomitant]
     Active Substance: CYANOCOBALAMIN
  5. VITAMIN B-6 [Concomitant]
     Active Substance: PYRIDOXINE
  6. TIMOPTIC-XE [Concomitant]
     Active Substance: TIMOLOL MALEATE
  7. LETAIRIS [Suspect]
     Active Substance: AMBRISENTAN
     Indication: PULMONARY ARTERIAL HYPERTENSION
     Route: 048
     Dates: start: 20091116
  8. COLACE [Concomitant]
     Active Substance: DOCUSATE SODIUM
  9. LEXAPRO [Concomitant]
     Active Substance: ESCITALOPRAM OXALATE
  10. CENTRUM SILVER [Concomitant]
     Active Substance: VITAMINS
  11. NEXIUM [Concomitant]
     Active Substance: ESOMEPRAZOLE MAGNESIUM
  12. FOLIC ACID. [Concomitant]
     Active Substance: FOLIC ACID
  13. VIAGRA [Concomitant]
     Active Substance: SILDENAFIL CITRATE
  14. LASIX [Concomitant]
     Active Substance: FUROSEMIDE
  15. COUMADIN [Concomitant]
     Active Substance: WARFARIN SODIUM

REACTIONS (3)
  - Peripheral swelling [Unknown]
  - Myalgia [Unknown]
  - Fluid retention [Unknown]

NARRATIVE: CASE EVENT DATE: 20100503
